FAERS Safety Report 4841924-0 (Version None)
Quarter: 2005Q4

REPORT INFORMATION
  Report Type: 
  Country: None (occurrence: None)
  Receive Date: 20051130
  Receipt Date: 20051004
  Transmission Date: 20060501
  Serious: No
  Sender: FDA-Public Use
  Company Number: US-GLAXOSMITHKLINE-A0576965A

PATIENT
  Age: 62 Year
  Sex: Female

DRUGS (4)
  1. WELLBUTRIN XL [Suspect]
     Indication: DEPRESSION
     Dosage: 150MG PER DAY
     Route: 048
     Dates: start: 20050927
  2. EXCEDRIN (MIGRAINE) [Concomitant]
  3. ADVIL [Concomitant]
  4. MULTI VIT [Concomitant]

REACTIONS (7)
  - ABNORMAL DREAMS [None]
  - CRYING [None]
  - DIZZINESS [None]
  - MIGRAINE [None]
  - NAUSEA [None]
  - PAIN [None]
  - PALPITATIONS [None]
